FAERS Safety Report 18970602 (Version 2)
Quarter: 2021Q1

REPORT INFORMATION
  Report Type: Spontaneous
  Country: US (occurrence: US)
  Receive Date: 20210304
  Receipt Date: 20210325
  Transmission Date: 20210420
  Serious: Yes (Other)
  Sender: FDA-Public Use
  Company Number: US-INTRA-CELLULAR THERAPIES, INC.-2021ICT00080

PATIENT
  Age: 37 Year
  Sex: Female
  Weight: 68.03 kg

DRUGS (3)
  1. CAPLYTA [Suspect]
     Active Substance: LUMATEPERONE
     Indication: SCHIZOAFFECTIVE DISORDER
  2. CAPLYTA [Suspect]
     Active Substance: LUMATEPERONE
     Indication: BIPOLAR DISORDER
     Dosage: 42 MG, 1X/DAY
     Route: 048
     Dates: start: 202101, end: 202102
  3. LEVOTHYROXINE. [Concomitant]
     Active Substance: LEVOTHYROXINE

REACTIONS (5)
  - Off label use [Recovered/Resolved]
  - Dyskinesia [Recovering/Resolving]
  - Psychotic disorder [Recovering/Resolving]
  - Trance [Recovering/Resolving]
  - Staring [Recovering/Resolving]

NARRATIVE: CASE EVENT DATE: 202101
